FAERS Safety Report 4695555-6 (Version None)
Quarter: 2005Q2

REPORT INFORMATION
  Report Type: 
  Country: None (occurrence: None)
  Receive Date: 20050523
  Receipt Date: 20050512
  Transmission Date: 20051028
  Serious: Yes (Hospitalization)
  Sender: FDA-Public Use
  Company Number: 2005CG00919

PATIENT
  Age: 42 Year
  Sex: Female
  Weight: 58 kg

DRUGS (4)
  1. NEXIUM [Suspect]
     Route: 048
     Dates: start: 20050326, end: 20050326
  2. NEXIUM [Suspect]
     Route: 048
     Dates: start: 20050328, end: 20050328
  3. DEBRIDAT [Suspect]
     Route: 048
  4. BACILOR [Suspect]
     Route: 048

REACTIONS (5)
  - EYELID OEDEMA [None]
  - HYPERHIDROSIS [None]
  - LARYNGEAL OEDEMA [None]
  - ORTHOSTATIC HYPOTENSION [None]
  - SOMNOLENCE [None]
